FAERS Safety Report 8180172-6 (Version None)
Quarter: 2012Q1

REPORT INFORMATION
  Report Type: 
  Country: None (occurrence: None)
  Receive Date: 20120302
  Receipt Date: 20120217
  Transmission Date: 20120608
  Serious: Yes (Other)
  Sender: FDA-Public Use
  Company Number: SE-AMGEN-SWESP2010005421

PATIENT
  Age: 48 Year
  Sex: Female

DRUGS (10)
  1. METHOTREXATE SODIUM [Suspect]
     Dosage: 15 MG, WEEKLY
     Dates: start: 19970101
  2. IMOVANE [Concomitant]
     Indication: SLEEP DISORDER
     Dosage: 7.5 MG, UNK
  3. ENBREL [Suspect]
     Dosage: UNK
     Dates: start: 20101103, end: 20111110
  4. ENBREL [Suspect]
     Indication: RHEUMATOID ARTHRITIS
     Dosage: 25 MG, 2 TIMES/WK
     Route: 058
     Dates: start: 19991201, end: 20050101
  5. ENBREL [Suspect]
     Dosage: 50 MG, WEEKLY
     Dates: start: 20050101, end: 20101001
  6. METHOTREXATE SODIUM [Suspect]
     Dosage: 15 MG, QWK
     Dates: start: 20110122, end: 20110101
  7. CALCIUM CARBONATE [Concomitant]
     Dosage: 500 MG, 2X/DAY
     Dates: start: 20080101
  8. CORTISONE ACETATE [Suspect]
     Dosage: UNK
  9. PREDNISOLONE [Suspect]
     Indication: SYSTEMIC LUPUS ERYTHEMATOSUS
     Dosage: 20 MG, UNK
     Dates: start: 20110117
  10. PREDNISOLONE [Suspect]
     Dosage: 10 MG, UNK

REACTIONS (9)
  - RHEUMATOID ARTHRITIS [None]
  - INSOMNIA [None]
  - DRUG INEFFECTIVE [None]
  - BURNING SENSATION [None]
  - SYSTEMIC LUPUS ERYTHEMATOSUS [None]
  - HYPOAESTHESIA [None]
  - NAUSEA [None]
  - JOINT SWELLING [None]
  - DRUG SPECIFIC ANTIBODY PRESENT [None]
